FAERS Safety Report 4421615-0 (Version None)
Quarter: 2004Q3

REPORT INFORMATION
  Report Type: 
  Country: None (occurrence: None)
  Receive Date: 20040809
  Receipt Date: 20040809
  Transmission Date: 20050211
  Serious: Yes (Hospitalization)
  Sender: FDA-Public Use
  Company Number: None

PATIENT
  Age: 86 Year
  Sex: Female

DRUGS (5)
  1. ALLOPURINOL [Suspect]
     Indication: GOUT
     Dosage: 200 MG PO QD
     Route: 048
  2. DIOVAN [Concomitant]
  3. HYDROCHLOROTHIAZIDE [Concomitant]
  4. KCL TAB [Concomitant]
  5. PREDNISONE [Concomitant]

REACTIONS (5)
  - AGITATION [None]
  - PYREXIA [None]
  - RASH PRURITIC [None]
  - STAPHYLOCOCCAL SCALDED SKIN SYNDROME [None]
  - URTICARIA [None]
